FAERS Safety Report 7377840-2 (Version None)
Quarter: 2011Q1

REPORT INFORMATION
  Report Type: 
  Country: None (occurrence: None)
  Receive Date: 20110328
  Receipt Date: 20110315
  Transmission Date: 20110831
  Serious: Yes (Other)
  Sender: FDA-Public Use
  Company Number: GB-NOVOPROD-325046

PATIENT
  Age: 2 Year
  Sex: Male

DRUGS (5)
  1. PROTHROMBINKOMPLEX-KONZENTRAT      /00328501/ [Suspect]
     Indication: FACTOR VIII DEFICIENCY
  2. NOVOSEVEN [Suspect]
     Indication: FACTOR VIII DEFICIENCY
  3. FEIBA [Suspect]
     Indication: FACTOR VIII DEFICIENCY
  4. RITUXIMAB [Suspect]
     Indication: FACTOR VIII DEFICIENCY
     Dosage: 375 MG/M2, UNK
  5. ANTIHEMOPHILIC FACTOR (HUMAN) [Suspect]
     Indication: FACTOR VIII DEFICIENCY

REACTIONS (1)
  - FACTOR VIII INHIBITION [None]
